FAERS Safety Report 8920591 (Version 4)
Quarter: 2013Q1

REPORT INFORMATION
  Report Type: Spontaneous
  Country: US (occurrence: US)
  Receive Date: 20121121
  Receipt Date: 20130129
  Transmission Date: 20140127
  Serious: No
  Sender: FDA-Public Use
  Company Number: US-PFIZER INC-2012290385

PATIENT
  Age: 52 Year
  Sex: Male
  Weight: 136.5 kg

DRUGS (6)
  1. VIAGRA [Suspect]
     Indication: ERECTILE DYSFUNCTION
     Dosage: 50 MG, AS NEEDED
     Route: 048
     Dates: start: 1998
  2. VIAGRA [Suspect]
     Dosage: 100MG (50MG TWO TABLETS), AS NEEDED
  3. AXIRON [Concomitant]
     Indication: BLOOD TESTOSTERONE ABNORMAL
     Dosage: 30 MG/1.5 ML
  4. CYCLOBENZAPRINE [Concomitant]
     Indication: ARTHRITIS
     Dosage: 10 MG, AS NEEDED
  5. POTASSIUM [Concomitant]
     Dosage: UNK
  6. FUROSEMIDE [Concomitant]
     Indication: FLUID RETENTION
     Dosage: 80 MG, DAILY

REACTIONS (3)
  - Blood cholesterol increased [Unknown]
  - Headache [Unknown]
  - Drug ineffective [Unknown]
